FAERS Safety Report 6016550-0 (Version None)
Quarter: 2008Q4

REPORT INFORMATION
  Report Type: 
  Country: None (occurrence: None)
  Receive Date: 20081222
  Receipt Date: 20081211
  Transmission Date: 20090506
  Serious: Yes (Hospitalization)
  Sender: FDA-Public Use
  Company Number: US-ELI_LILLY_AND_COMPANY-US200812003954

PATIENT
  Age: 91 Year
  Sex: Female

DRUGS (3)
  1. ZYPREXA [Suspect]
     Dosage: 10 MG, EACH EVENING
     Dates: start: 20081205, end: 20081206
  2. LEVOTHYROXINE SODIUM [Concomitant]
     Dosage: 100 UG, UNK
  3. ARICEPT [Concomitant]
     Dosage: 100 MG, UNK

REACTIONS (6)
  - ARRHYTHMIA [None]
  - BLOOD CREATINE PHOSPHOKINASE INCREASED [None]
  - BLOOD GLUCOSE INCREASED [None]
  - HAEMOGLOBIN DECREASED [None]
  - HYPOTHERMIA [None]
  - WHITE BLOOD CELL COUNT INCREASED [None]
